FAERS Safety Report 5345794-6 (Version None)
Quarter: 2007Q2

REPORT INFORMATION
  Report Type: 
  Country: None (occurrence: None)
  Receive Date: 20070601
  Receipt Date: 20070523
  Transmission Date: 20071010
  Serious: Yes (Death, Hospitalization)
  Sender: FDA-Public Use
  Company Number: 2007US001160

PATIENT
  Age: 64 Year
  Sex: Female

DRUGS (7)
  1. AMBISOME [Suspect]
     Indication: MYCOSIS FUNGOIDES
     Dates: start: 20000808, end: 20000831
  2. GANCICLOVIR [Suspect]
     Indication: CYTOMEGALOVIRUS INFECTION
     Dosage: UNK, UNK, IV NOS
     Route: 042
     Dates: start: 20000820, end: 20000901
  3. SANDIMMUNE [Concomitant]
  4. MERONEM (MEROPENEM) [Concomitant]
  5. PRECORTALON AQUOSUM (PREDNISOLONE SODIUM SUCCINATE) [Concomitant]
  6. VANCOMYCIN HCL [Concomitant]
  7. URSO FALK [Concomitant]

REACTIONS (2)
  - FUNGAL SEPSIS [None]
  - HYPOTENSION [None]
